FAERS Safety Report 24912812 (Version 1)
Quarter: 2025Q1

REPORT INFORMATION
  Report Type: Report from Study
  Country: US (occurrence: US)
  Receive Date: 20250131
  Receipt Date: 20250131
  Transmission Date: 20250408
  Serious: Yes (Other)
  Sender: ABBVIE
  Company Number: US-ABBVIE-6102700

PATIENT
  Sex: Female

DRUGS (1)
  1. SKYRIZI [Suspect]
     Active Substance: RISANKIZUMAB-RZAA
     Indication: Product used for unknown indication
     Route: 058
     Dates: start: 20240319

REACTIONS (6)
  - Gastric operation [Unknown]
  - Post procedural inflammation [Unknown]
  - Proctalgia [Unknown]
  - Therapeutic response shortened [Unknown]
  - General symptom [Unknown]
  - Procedural pain [Unknown]
